FAERS Safety Report 8124126-4 (Version None)
Quarter: 2012Q1

REPORT INFORMATION
  Report Type: 
  Country: None (occurrence: None)
  Receive Date: 20120209
  Receipt Date: 20120202
  Transmission Date: 20120608
  Serious: Yes (Hospitalization)
  Sender: FDA-Public Use
  Company Number: NO-B.I. PHARMACEUTICALS,INC./RIDGEFIELD-2011-SW-00306NO

PATIENT
  Sex: Female

DRUGS (5)
  1. LEVOTHYROXINE SODIUM [Concomitant]
     Indication: HYPOTHYROIDISM
     Dosage: 100 MCG
  2. ATACAND PLUS MITE [Concomitant]
     Dosage: 1 ANZ
  3. ASPIRIN [Suspect]
     Dosage: 160 MG
  4. PERSANTIN [Suspect]
     Dosage: 400 MG
  5. IBUPROFEN [Suspect]
     Dosage: OCCATIONAL USE

REACTIONS (5)
  - CEREBRAL DISORDER [None]
  - MELAENA [None]
  - HAEMORRHAGIC ANAEMIA [None]
  - GASTRIC ULCER [None]
  - GASTROINTESTINAL HAEMORRHAGE [None]
